FAERS Safety Report 6610904-7 (Version None)
Quarter: 2010Q1

REPORT INFORMATION
  Report Type: 
  Country: None (occurrence: None)
  Receive Date: 20100219
  Receipt Date: 20100208
  Transmission Date: 20100710
  Serious: Yes (Other)
  Sender: FDA-Public Use
  Company Number: 1-21602748

PATIENT
  Age: 40 Year
  Sex: Male

DRUGS (3)
  1. LORAZEPAM [Suspect]
     Dosage: 2 MG/24 HOURS, ORAL
     Route: 048
  2. VALERIAN [Suspect]
     Dosage: 300MG QD X2, THEN 900MG QD, PO
     Route: 048
  3. PASSIONFLOWER [Suspect]
     Dosage: QD X1, THEN 1140MG QD, ORAL
     Route: 048

REACTIONS (10)
  - ANXIETY [None]
  - DIZZINESS [None]
  - DRUG INTERACTION [None]
  - MOVEMENT DISORDER [None]
  - MUSCLE FATIGUE [None]
  - MYALGIA [None]
  - NERVOUSNESS [None]
  - PALPITATIONS [None]
  - SOMNOLENCE [None]
  - TREMOR [None]
